FAERS Safety Report 8409755 (Version 3)
Quarter: 2013Q3

REPORT INFORMATION
  Report Type: Report from Study
  Country: IL (occurrence: IL)
  Receive Date: 20120216
  Receipt Date: 20130726
  Transmission Date: 20140515
  Serious: Yes (Hospitalization)
  Sender: FDA-Public Use
  Company Number: IL-ROCHE-1027396

PATIENT
  Age: 60 Year
  Sex: Male

DRUGS (9)
  1. VEMURAFENIB [Suspect]
     Indication: METASTATIC MALIGNANT MELANOMA
     Route: 048
     Dates: start: 20110825
  2. VEMURAFENIB [Suspect]
     Route: 048
     Dates: start: 20110918
  3. VEMURAFENIB [Suspect]
     Dosage: PILL  ; DATE OF LAST DOSE PRIOR TO SAE : 29/DEC/2011
     Route: 048
     Dates: start: 20111005, end: 20111229
  4. VEMURAFENIB [Suspect]
     Route: 048
     Dates: start: 20120104
  5. RIZATRIPTAN [Concomitant]
     Route: 065
     Dates: start: 1992
  6. BEZAFIBRATE [Concomitant]
     Route: 065
  7. ASPIRIN [Concomitant]
     Route: 065
  8. ASPIRIN [Concomitant]
     Dosage: 300 MG
     Route: 065
     Dates: start: 20111231, end: 20111231
  9. SIMVACOR [Concomitant]
     Route: 065

REACTIONS (1)
  - Pericarditis [Recovered/Resolved]
